FAERS Safety Report 7763945-0 (Version None)
Quarter: 2011Q3

REPORT INFORMATION
  Report Type: 
  Country: None (occurrence: None)
  Receive Date: 20110921
  Receipt Date: 20110908
  Transmission Date: 20111222
  Serious: Yes (Death, Other)
  Sender: FDA-Public Use
  Company Number: US-ELI_LILLY_AND_COMPANY-US201107003914

PATIENT
  Sex: Female
  Weight: 54.422 kg

DRUGS (1)
  1. FORTEO [Suspect]
     Indication: OSTEOPOROSIS
     Dosage: 20 UG, QD
     Route: 058
     Dates: start: 20090801

REACTIONS (7)
  - PULMONARY HYPERTENSION [None]
  - CARDIAC ARREST [None]
  - MULTI-ORGAN FAILURE [None]
  - AORTIC STENOSIS [None]
  - CARDIAC FAILURE CHRONIC [None]
  - MITRAL VALVE INCOMPETENCE [None]
  - SEPTIC SHOCK [None]
